FAERS Safety Report 23287355 (Version 1)
Quarter: 2023Q4

REPORT INFORMATION
  Report Type: Spontaneous
  Country: US (occurrence: US)
  Receive Date: 20231212
  Receipt Date: 20231212
  Transmission Date: 20240110
  Serious: No
  Sender: FDA-Public Use
  Company Number: US-GLENMARK PHARMACEUTICALS-2023GMK077856

PATIENT

DRUGS (1)
  1. BETAMETHASONE DIPROPIONATE\CLOTRIMAZOLE [Suspect]
     Active Substance: BETAMETHASONE DIPROPIONATE\CLOTRIMAZOLE
     Indication: Vulvovaginal erythema
     Dosage: UNK
     Route: 065

REACTIONS (4)
  - Vulvovaginal erythema [Unknown]
  - Vulvovaginal pruritus [Unknown]
  - Condition aggravated [Unknown]
  - Product use in unapproved indication [Unknown]
